FAERS Safety Report 7382482-9 (Version None)
Quarter: 2011Q1

REPORT INFORMATION
  Report Type: 
  Country: None (occurrence: None)
  Receive Date: 20110329
  Receipt Date: 20110316
  Transmission Date: 20110831
  Serious: Yes (Other)
  Sender: FDA-Public Use
  Company Number: US-BAYER-2011-009748

PATIENT
  Sex: Male

DRUGS (1)
  1. NEXAVAR [Suspect]
     Indication: SOFT TISSUE NEOPLASM
     Dosage: 400 MG, BID
     Route: 048
     Dates: start: 20110116

REACTIONS (5)
  - FATIGUE [None]
  - RASH [None]
  - SKIN EXFOLIATION [None]
  - ERECTILE DYSFUNCTION [None]
  - URINARY RETENTION [None]
